FAERS Safety Report 20137146 (Version 2)
Quarter: 2021Q4

REPORT INFORMATION
  Report Type: Spontaneous
  Country: US (occurrence: US)
  Receive Date: 20211201
  Receipt Date: 20211213
  Transmission Date: 20220303
  Serious: Yes (Other)
  Sender: FDA-Public Use
  Company Number: US-TEVA-2021-US-1982239

PATIENT
  Age: 58 Year
  Sex: Male

DRUGS (4)
  1. CALCITRIOL [Interacting]
     Active Substance: CALCITRIOL
     Indication: Hypocalcaemia
     Dosage: 1 MICROGRAM DAILY;
     Route: 065
  2. DENOSUMAB [Suspect]
     Active Substance: DENOSUMAB
     Indication: Osteolysis
     Route: 065
  3. CALCIUM CARBONATE [Interacting]
     Active Substance: CALCIUM CARBONATE
     Indication: Hypocalcaemia
     Dosage: 6000 MILLIGRAM DAILY;
     Route: 065
  4. LIRAGLUTIDE [Interacting]
     Active Substance: LIRAGLUTIDE
     Indication: Type 2 diabetes mellitus
     Route: 065

REACTIONS (4)
  - Hypocalcaemia [Recovered/Resolved]
  - Acute kidney injury [Recovered/Resolved]
  - Hypercalcaemia [Recovered/Resolved]
  - Drug interaction [Unknown]
